FAERS Safety Report 5027383-6 (Version None)
Quarter: 2006Q2

REPORT INFORMATION
  Report Type: 
  Country: None (occurrence: None)
  Receive Date: 20060501
  Receipt Date: 20060301
  Transmission Date: 20061013
  Serious: Yes (Other)
  Sender: FDA-Public Use
  Company Number: 200611197BWH

PATIENT
  Age: 52 Year
  Sex: Male
  Weight: 111.1313 kg

DRUGS (2)
  1. NEXAVAR [Suspect]
     Indication: NEOPLASM
     Dosage: 400 MG, BID, ORAL
     Route: 048
     Dates: start: 20051201, end: 20060313
  2. LOTENSIN [Concomitant]

REACTIONS (6)
  - BLISTER [None]
  - HYPERSENSITIVITY [None]
  - PRURITUS [None]
  - RASH [None]
  - RASH PRURITIC [None]
  - SWELLING FACE [None]
